FAERS Safety Report 20958373 (Version 2)
Quarter: 2022Q2

REPORT INFORMATION
  Report Type: Report from Study
  Country: AU (occurrence: AU)
  Receive Date: 20220614
  Receipt Date: 20220629
  Transmission Date: 20220721
  Serious: Yes (Other)
  Sender: FDA-Public Use
  Company Number: AU-TAKEDA-2022TUS033372

PATIENT
  Age: 0 Year
  Sex: Male

DRUGS (1)
  1. HUMAN IMMUNOGLOBULIN G [Suspect]
     Active Substance: HUMAN IMMUNOGLOBULIN G
     Indication: Primary immunodeficiency syndrome
     Dosage: 1 GRAM, 3/MONTH
     Route: 058
     Dates: start: 20220517

REACTIONS (6)
  - Laryngomalacia [Recovering/Resolving]
  - Infusion site inflammation [Recovered/Resolved]
  - Infusion site irritation [Unknown]
  - Infusion site erythema [Recovered/Resolved]
  - Cough [Recovered/Resolved]
  - Off label use [Unknown]

NARRATIVE: CASE EVENT DATE: 20220517
